APPROVED DRUG PRODUCT: OSELTAMIVIR PHOSPHATE
Active Ingredient: OSELTAMIVIR PHOSPHATE
Strength: EQ 45MG BASE
Dosage Form/Route: CAPSULE;ORAL
Application: A214726 | Product #002
Applicant: ACCORD HEALTHCARE INC
Approved: Jul 25, 2022 | RLD: No | RS: No | Type: DISCN